FAERS Safety Report 8399116-7 (Version None)
Quarter: 2012Q2

REPORT INFORMATION
  Report Type: 
  Country: None (occurrence: None)
  Receive Date: 20120525
  Receipt Date: 20120516
  Transmission Date: 20120825
  Serious: Yes (Hospitalization, Other)
  Sender: FDA-Public Use
  Company Number: ADR-2012-00941

PATIENT
  Sex: Female

DRUGS (4)
  1. BACLOFEN [Suspect]
     Indication: SPINAL CORD INJURY
  2. BACLOFEN [Suspect]
     Indication: MUSCLE SPASTICITY
  3. DILAUDID [Concomitant]
  4. CLONIDINE [Concomitant]

REACTIONS (4)
  - MIOSIS [None]
  - OVERDOSE [None]
  - SEDATION [None]
  - SOMNOLENCE [None]
